FAERS Safety Report 6871443-1 (Version None)
Quarter: 2010Q3

REPORT INFORMATION
  Report Type: 
  Country: None (occurrence: None)
  Receive Date: 20100721
  Receipt Date: 20100712
  Transmission Date: 20110219
  Serious: Yes (Other)
  Sender: FDA-Public Use
  Company Number: 015449

PATIENT
  Sex: Female
  Weight: 50.3 kg

DRUGS (2)
  1. CIMZIA [Suspect]
     Indication: CROHN'S DISEASE
     Dosage: (400 MG 1X/MONTH SUBCUTANEOUS)
     Route: 058
     Dates: start: 20091101
  2. ASACOL [Concomitant]

REACTIONS (4)
  - ARTHRITIS [None]
  - MENORRHAGIA [None]
  - SKIN DISORDER [None]
  - SKIN ULCER [None]
